FAERS Safety Report 16128352 (Version 1)
Quarter: 2019Q1

REPORT INFORMATION
  Report Type: Spontaneous
  Country: US (occurrence: US)
  Receive Date: 20190225
  Receipt Date: 20190225
  Transmission Date: 20190418
  Serious: No
  Sender: FDA-Public Use
  Company Number: None

PATIENT
  Age: 70 Year
  Sex: Female
  Weight: 62.6 kg

DRUGS (1)
  1. TYMLOS [Suspect]
     Active Substance: ABALOPARATIDE
     Indication: OSTEOPOROSIS
     Dosage: ?          OTHER STRENGTH:3120 MCG/1.56ML;?
     Route: 058
     Dates: start: 201809

REACTIONS (7)
  - Nasopharyngitis [None]
  - Joint injury [None]
  - Tendon rupture [None]
  - Nervous system disorder [None]
  - Synovial cyst [None]
  - Foot fracture [None]
  - Nausea [None]
